FAERS Safety Report 7349251-7 (Version None)
Quarter: 2011Q1

REPORT INFORMATION
  Report Type: 
  Country: None (occurrence: None)
  Receive Date: 20110225
  Receipt Date: 20101029
  Transmission Date: 20110831
  Serious: Yes (Hospitalization)
  Sender: FDA-Public Use
  Company Number: 314554

PATIENT
  Age: 52 Year
  Sex: Female
  Weight: 113.4 kg

DRUGS (8)
  1. METOPROLOL (METOPROLOL) [Concomitant]
  2. NOVOLOG (INSULIN ASPART, INSULIN ASPART) [Concomitant]
  3. TRICOR /00090101/ (ADENOSINE) [Concomitant]
  4. COUMADIN [Concomitant]
  5. LOVAZA [Concomitant]
  6. ASPIRIN [Concomitant]
  7. VICTOZA [Suspect]
     Indication: TYPE 2 DIABETES MELLITUS
     Dosage: 1.8 MG, QD, SUBCUTANEOUS
     Route: 058
     Dates: start: 20100701, end: 20100903
  8. PLAVIX [Concomitant]

REACTIONS (2)
  - PANCREATITIS [None]
  - GLYCOSYLATED HAEMOGLOBIN DECREASED [None]
